FAERS Safety Report 26040365 (Version 1)
Quarter: 2025Q4

REPORT INFORMATION
  Report Type: Spontaneous
  Country: TW (occurrence: TW)
  Receive Date: 20251113
  Receipt Date: 20251113
  Transmission Date: 20260118
  Serious: Yes (Death, Life-Threatening)
  Sender: MYLAN
  Company Number: TW-MYLANLABS-2025M1094997

PATIENT
  Age: 42 Year
  Sex: Female

DRUGS (12)
  1. DOXORUBICIN [Suspect]
     Active Substance: DOXORUBICIN
     Indication: Angiosarcoma
     Dosage: UNK
  2. DOXORUBICIN [Suspect]
     Active Substance: DOXORUBICIN
     Indication: Cardiac neoplasm malignant
  3. GEMCITABINE [Suspect]
     Active Substance: GEMCITABINE
     Indication: Angiosarcoma
     Dosage: UNK
  4. GEMCITABINE [Suspect]
     Active Substance: GEMCITABINE
     Indication: Cardiac neoplasm malignant
  5. DOCETAXEL [Suspect]
     Active Substance: DOCETAXEL
     Indication: Angiosarcoma
     Dosage: UNK
  6. DOCETAXEL [Suspect]
     Active Substance: DOCETAXEL
     Indication: Cardiac neoplasm malignant
  7. IFOSFAMIDE [Suspect]
     Active Substance: IFOSFAMIDE
     Indication: Angiosarcoma
     Dosage: UNK
  8. IFOSFAMIDE [Suspect]
     Active Substance: IFOSFAMIDE
     Indication: Cardiac neoplasm malignant
  9. CABOZANTINIB [Suspect]
     Active Substance: CABOZANTINIB
     Indication: Angiosarcoma
     Dosage: UNK
  10. CABOZANTINIB [Suspect]
     Active Substance: CABOZANTINIB
     Indication: Cardiac neoplasm malignant
  11. NIVOLUMAB [Suspect]
     Active Substance: NIVOLUMAB
     Indication: Angiosarcoma
     Dosage: UNK
  12. NIVOLUMAB [Suspect]
     Active Substance: NIVOLUMAB
     Indication: Cardiac neoplasm malignant

REACTIONS (5)
  - Drug ineffective [Fatal]
  - Disease progression [Fatal]
  - Pancytopenia [Unknown]
  - Pneumonia [Unknown]
  - Septic shock [Unknown]
